FAERS Safety Report 5272527-4 (Version None)
Quarter: 2007Q1

REPORT INFORMATION
  Report Type: 
  Country: None (occurrence: None)
  Receive Date: 20070322
  Receipt Date: 20061005
  Transmission Date: 20070707
  Serious: Yes (Other)
  Sender: FDA-Public Use
  Company Number: US-BRISTOL-MYERS SQUIBB COMPANY-13531132

PATIENT
  Age: 38 Year
  Sex: Female
  Weight: 46 kg

DRUGS (2)
  1. KENALOG [Suspect]
     Indication: RASH
     Dates: start: 20060724, end: 20060724
  2. SYNTHROID [Concomitant]

REACTIONS (4)
  - MENORRHAGIA [None]
  - MENSTRUATION IRREGULAR [None]
  - PALPITATIONS [None]
  - VISUAL DISTURBANCE [None]
